FAERS Safety Report 7761697-1 (Version None)
Quarter: 2011Q3

REPORT INFORMATION
  Report Type: 
  Country: None (occurrence: None)
  Receive Date: 20110915
  Receipt Date: 20110818
  Transmission Date: 20111222
  Serious: Yes (Hospitalization)
  Sender: FDA-Public Use
  Company Number: 2011190326

PATIENT
  Age: 59 Year
  Sex: Male

DRUGS (4)
  1. CYTARABINE [Suspect]
     Indication: ACUTE MYELOID LEUKAEMIA
     Dosage: INTRAVENOUS
     Route: 042
     Dates: start: 20080926, end: 20081002
  2. CYTARABINE [Suspect]
     Indication: ACUTE MYELOID LEUKAEMIA
     Dosage: INTRAVENOUS
     Route: 042
     Dates: start: 20090107, end: 20090114
  3. CERUBIDINE [Suspect]
     Indication: ACUTE MYELOID LEUKAEMIA
     Dosage: INTRAVENOUS
     Route: 042
     Dates: start: 20080926, end: 20080928
  4. CERUBIDINE [Suspect]
     Indication: ACUTE MYELOID LEUKAEMIA
     Dosage: INTRAVENOUS
     Route: 042
     Dates: start: 20090107, end: 20090109

REACTIONS (6)
  - INFLAMMATION [None]
  - HEPATITIS CHOLESTATIC [None]
  - BRONCHOPULMONARY ASPERGILLOSIS [None]
  - RETINAL VEIN THROMBOSIS [None]
  - LIVER ABSCESS [None]
  - HEPATOSPLENIC CANDIDIASIS [None]
